FAERS Safety Report 18984318 (Version 2)
Quarter: 2021Q1

REPORT INFORMATION
  Report Type: Spontaneous
  Country: CN (occurrence: CN)
  Receive Date: 20210308
  Receipt Date: 20210319
  Transmission Date: 20210420
  Serious: Yes (Hospitalization)
  Sender: FDA-Public Use
  Company Number: CN-ORGANON-O2103CHN000711

PATIENT
  Sex: Female

DRUGS (2)
  1. ESOMEPRAZOLE. [Suspect]
     Active Substance: ESOMEPRAZOLE MAGNESIUM
     Indication: ANTACID THERAPY
     Dosage: ENTERIC?COATED TABLETS, 40 MILLIGRAM, QD
     Route: 048
     Dates: start: 20210207, end: 20210222
  2. SINGULAIR [Suspect]
     Active Substance: MONTELUKAST SODIUM
     Dosage: 10MG, QD; PHARMACEUTICAL FORM (DOSAGE FORM): TABLETS FLAVOURED
     Route: 048
     Dates: start: 20210202, end: 20210222

REACTIONS (3)
  - Pain [Not Recovered/Not Resolved]
  - Discomfort [Not Recovered/Not Resolved]
  - Mobility decreased [Unknown]

NARRATIVE: CASE EVENT DATE: 2021
